FAERS Safety Report 17546027 (Version 1)
Quarter: 2020Q1

REPORT INFORMATION
  Report Type: Spontaneous
  Country: US (occurrence: US)
  Receive Date: 20200316
  Receipt Date: 20200316
  Transmission Date: 20200409
  Serious: Yes (Other)
  Sender: FDA-Public Use
  Company Number: US-AMERICAN REGENT INC-2020000622

PATIENT
  Age: 18 Year
  Sex: Male

DRUGS (23)
  1. TOPIRAMATE. [Suspect]
     Active Substance: TOPIRAMATE
     Indication: STATUS EPILEPTICUS
     Dosage: UNK
     Route: 042
  2. FOSPHENYTOIN SODIUM INJECTION, USP (025-21) [Concomitant]
     Active Substance: FOSPHENYTOIN SODIUM
     Indication: STATUS EPILEPTICUS
     Dosage: UNK
     Route: 042
  3. ACYCLOVIR                          /00587301/ [Concomitant]
     Active Substance: ACYCLOVIR
     Indication: ANTIBIOTIC THERAPY
     Dosage: UNK
     Route: 042
  4. LORAZEPAM. [Concomitant]
     Active Substance: LORAZEPAM
     Indication: SEIZURE
     Dosage: UNK, AS NEEDED
     Route: 042
  5. MIDAZOLAM HYDROCHLORIDE. [Concomitant]
     Active Substance: MIDAZOLAM HYDROCHLORIDE
     Indication: SEIZURE
     Dosage: INFUSION UP-TITRATED TO 60 MG/H
     Route: 042
  6. KETAMINE [Concomitant]
     Active Substance: KETAMINE
     Indication: STATUS EPILEPTICUS
     Dosage: UNK
     Route: 042
  7. OXCARBAZEPINE. [Suspect]
     Active Substance: OXCARBAZEPINE
     Indication: STATUS EPILEPTICUS
     Dosage: UNK
     Route: 042
  8. PENTOBARBITAL. [Concomitant]
     Active Substance: PENTOBARBITAL
     Indication: STATUS EPILEPTICUS
     Dosage: UNK
     Route: 042
  9. LEVETIRACETAM INJECTION (0517-3605-25) [Suspect]
     Active Substance: LEVETIRACETAM
     Indication: SEIZURE
     Dosage: UNK
     Route: 042
  10. RITUXIMAB. [Concomitant]
     Active Substance: RITUXIMAB
     Indication: ANTI-GAD ANTIBODY POSITIVE
     Dosage: ONCE EVERY TWO WEEKS
     Route: 042
  11. CEFTRIAXONE. [Concomitant]
     Active Substance: CEFTRIAXONE
     Indication: ANTIBIOTIC THERAPY
     Dosage: UNK
     Route: 042
  12. CLOBAZAM. [Concomitant]
     Active Substance: CLOBAZAM
     Indication: STATUS EPILEPTICUS
     Dosage: UNK
     Route: 042
  13. FELBAMATE. [Concomitant]
     Active Substance: FELBAMATE
     Indication: STATUS EPILEPTICUS
     Dosage: UNK
     Route: 042
  14. LACOSAMIDE. [Suspect]
     Active Substance: LACOSAMIDE
     Indication: STATUS EPILEPTICUS
     Dosage: UNK
     Route: 042
  15. VALPROIC ACID. [Concomitant]
     Active Substance: VALPROIC ACID
     Indication: STATUS EPILEPTICUS
  16. VASOPRESSIN. [Concomitant]
     Active Substance: VASOPRESSIN
     Indication: DIABETES INSIPIDUS
     Dosage: UNK
     Route: 042
  17. LEVETIRACETAM INJECTION (0517-3605-25) [Suspect]
     Active Substance: LEVETIRACETAM
     Indication: STATUS EPILEPTICUS
  18. VALPROIC ACID. [Concomitant]
     Active Substance: VALPROIC ACID
     Indication: SEIZURE
     Dosage: UNK
     Route: 042
  19. PROPOFOL. [Concomitant]
     Active Substance: PROPOFOL
     Indication: SEIZURE
     Dosage: INFUSION UP TO 150 MCG/KG/MIN
     Route: 042
  20. DOXYCYCLINE. [Concomitant]
     Active Substance: DOXYCYCLINE
     Indication: ANTIBIOTIC THERAPY
     Dosage: UNK
     Route: 042
  21. VANCOMYCIN [Concomitant]
     Active Substance: VANCOMYCIN
     Indication: ANTIBIOTIC THERAPY
     Dosage: UNK
     Route: 042
  22. PROPOFOL. [Concomitant]
     Active Substance: PROPOFOL
     Dosage: INTERMITTENT BOLUSES TO MAINTAIN BURST SUPPRESSION
  23. PERAMPANEL [Concomitant]
     Active Substance: PERAMPANEL
     Indication: STATUS EPILEPTICUS
     Dosage: UNK
     Route: 042

REACTIONS (2)
  - Status epilepticus [Recovered/Resolved]
  - Drug ineffective [Recovered/Resolved]
